FAERS Safety Report 4322700-4 (Version None)
Quarter: 2004Q1

REPORT INFORMATION
  Report Type: 
  Country: None (occurrence: None)
  Receive Date: 20040324
  Receipt Date: 20031021
  Transmission Date: 20041129
  Serious: Yes (Death)
  Sender: FDA-Public Use
  Company Number: PHBS2003JP11718

PATIENT
  Age: 50 Year
  Sex: Male

DRUGS (6)
  1. SIMULECT [Suspect]
     Indication: LUNG TRANSPLANT
     Dosage: 20 MG, ONCE/SINGLE
     Route: 042
     Dates: start: 20030930, end: 20030930
  2. SIMULECT [Suspect]
     Dosage: 20 MG, ONCE/SINGLE
     Route: 042
     Dates: start: 20031005, end: 20031005
  3. SANDIMMUNE [Suspect]
     Indication: LUNG TRANSPLANT
     Dosage: 220 MG/D
     Route: 042
     Dates: start: 20031001
  4. IMURAN [Concomitant]
     Dosage: 100 MG/D
     Route: 042
     Dates: start: 20031001
  5. SOLU-MEDROL [Concomitant]
     Dosage: 500 MG/D
     Route: 042
     Dates: start: 20030930
  6. TARGOCID [Concomitant]
     Route: 042
     Dates: start: 20031001

REACTIONS (5)
  - COMPLICATIONS OF TRANSPLANT SURGERY [None]
  - INFECTION [None]
  - LUNG DISORDER [None]
  - NECROSIS OF BRONCHIOLI [None]
  - PLEURAL HAEMORRHAGE [None]
